FAERS Safety Report 20298581 (Version 1)
Quarter: 2022Q1

REPORT INFORMATION
  Report Type: Spontaneous
  Country: US (occurrence: None)
  Receive Date: 20220105
  Receipt Date: 20220105
  Transmission Date: 20220423
  Serious: No
  Sender: FDA-Public Use
  Company Number: 2021A892818

PATIENT
  Sex: Female

DRUGS (1)
  1. BUDESONIDE\FORMOTEROL FUMARATE DIHYDRATE [Suspect]
     Active Substance: BUDESONIDE\FORMOTEROL FUMARATE DIHYDRATE
     Indication: Alpha-1 antitrypsin deficiency
     Dosage: 80/4.5 MCG, 2INHALATIONS TWICE A DAY
     Route: 055

REACTIONS (3)
  - Cough [Unknown]
  - Off label use of device [Unknown]
  - Intentional device misuse [Unknown]
